FAERS Safety Report 12546662 (Version 1)
Quarter: 2016Q3

REPORT INFORMATION
  Report Type: Spontaneous
  Country: US (occurrence: US)
  Receive Date: 20160711
  Receipt Date: 20160711
  Transmission Date: 20161109
  Serious: No
  Sender: FDA-Public Use
  Company Number: US-GLAXOSMITHKLINE-US2016093368

PATIENT
  Age: 70 Year
  Sex: Female

DRUGS (7)
  1. ANORO ELLIPTA [Suspect]
     Active Substance: UMECLIDINIUM BROMIDE\VILANTEROL TRIFENATATE
     Indication: CHRONIC OBSTRUCTIVE PULMONARY DISEASE
     Dosage: 1 PUFF(S), QOD
     Route: 055
     Dates: start: 201602
  2. ATIVAN [Concomitant]
     Active Substance: LORAZEPAM
  3. IPRATROPIUM BROMIDE + SALBUTAMOL NEBULIZER SOLUTION [Suspect]
     Active Substance: ALBUTEROL SULFATE\IPRATROPIUM BROMIDE
     Indication: CHRONIC OBSTRUCTIVE PULMONARY DISEASE
     Dosage: UNK UNK, QID
     Route: 055
  4. L-THYROXINE [Concomitant]
     Active Substance: LEVOTHYROXINE
  5. PULMICORT TURBUHALER [Concomitant]
     Active Substance: BUDESONIDE
  6. DALIRESP [Concomitant]
     Active Substance: ROFLUMILAST
  7. PROAIR HFA [Concomitant]
     Active Substance: ALBUTEROL SULFATE

REACTIONS (5)
  - Labelled drug-drug interaction medication error [Unknown]
  - Chronic obstructive pulmonary disease [Recovering/Resolving]
  - Intentional product use issue [Unknown]
  - Cough [Not Recovered/Not Resolved]
  - Productive cough [Not Recovered/Not Resolved]

NARRATIVE: CASE EVENT DATE: 20160602
